FAERS Safety Report 9776817 (Version 1)
Quarter: 2013Q4

REPORT INFORMATION
  Report Type: Spontaneous
  Country: MX (occurrence: MX)
  Receive Date: 20131220
  Receipt Date: 20131220
  Transmission Date: 20140711
  Serious: Yes (Other)
  Sender: FDA-Public Use
  Company Number: PHHY2013MX145224

PATIENT
  Age: 88 Year
  Sex: Female

DRUGS (6)
  1. ZOMETA [Suspect]
     Indication: BONE DISORDER
     Dosage: 4 MG PER 5 ML, EVERY 3 MONTH
     Route: 042
  2. LOSARTAN [Concomitant]
     Indication: BLOOD PRESSURE INCREASED
     Dosage: 1.5 UNK, DAILY
  3. SENNOSIDES [Concomitant]
     Indication: CONSTIPATION
     Dosage: 1 UKN, DAILY
  4. OMEPRAZOLE [Concomitant]
     Indication: GASTRIC DISORDER
     Dosage: 1 UKN, DAILY
  5. GABAPENTINE [Concomitant]
     Indication: BONE PAIN
     Dosage: 2 UKN, DAILY
  6. GABAPENTINE [Concomitant]
     Dosage: 1 UNK, DAILY

REACTIONS (4)
  - Abasia [Not Recovered/Not Resolved]
  - General physical health deterioration [Not Recovered/Not Resolved]
  - Osteoporosis [Not Recovered/Not Resolved]
  - Condition aggravated [Not Recovered/Not Resolved]
